FAERS Safety Report 8132179-2 (Version None)
Quarter: 2012Q1

REPORT INFORMATION
  Report Type: 
  Country: None (occurrence: None)
  Receive Date: 20120213
  Receipt Date: 20120207
  Transmission Date: 20120608
  Serious: Yes (Hospitalization, Other)
  Sender: FDA-Public Use
  Company Number: IE-PFIZER INC-2012032922

PATIENT
  Age: 74 Year
  Sex: Male

DRUGS (7)
  1. TELMISARTAN [Concomitant]
  2. LANSOPRAZOLE [Concomitant]
  3. VENLAFAXINE HCL [Suspect]
  4. DIAZEPAM [Concomitant]
  5. HYDROCHLOROTHIAZIDE [Suspect]
  6. ZOLPIDEM HEMITARTARATE [Concomitant]
  7. PROPRANOLOL [Concomitant]

REACTIONS (2)
  - URINE SODIUM INCREASED [None]
  - INAPPROPRIATE ANTIDIURETIC HORMONE SECRETION [None]
